FAERS Safety Report 7358359-1 (Version None)
Quarter: 2011Q1

REPORT INFORMATION
  Report Type: 
  Country: None (occurrence: None)
  Receive Date: 20110317
  Receipt Date: 20110314
  Transmission Date: 20110831
  Serious: Yes (Hospitalization)
  Sender: FDA-Public Use
  Company Number: ES-ABBOTT-11P-144-0711059-00

PATIENT
  Age: 52 Year
  Sex: Male

DRUGS (6)
  1. INZITAN [Concomitant]
     Indication: PAIN
     Route: 048
     Dates: start: 20080901, end: 20081003
  2. KALETRA [Suspect]
     Indication: HIV INFECTION
     Dosage: 4 TABLETS PER DAY, 100/25 MG
     Route: 048
     Dates: start: 20020601, end: 20081001
  3. DIDANOSINA [Concomitant]
     Indication: HIV INFECTION
     Route: 048
     Dates: start: 20020601, end: 20081001
  4. DICLOFENACO [Interacting]
     Indication: PAIN
     Dosage: 5 TABLETS/ DAY
     Route: 048
     Dates: start: 20080906, end: 20081006
  5. METAMIZOL MAGNESICO (NOLOTIL AMP) [Concomitant]
     Indication: PAIN
     Route: 048
     Dates: start: 20080801, end: 20081006
  6. TENOFOVIR DISOPROXIL FUMARATE [Interacting]
     Indication: HIV INFECTION
     Dosage: 735 MG DAILY
     Route: 048
     Dates: start: 20020601, end: 20081001

REACTIONS (7)
  - INTERVERTEBRAL DISC DEGENERATION [None]
  - RENAL FAILURE ACUTE [None]
  - WEIGHT DECREASED [None]
  - VOMITING [None]
  - BACK PAIN [None]
  - METABOLIC ACIDOSIS [None]
  - ANAEMIA [None]
